FAERS Safety Report 6710449-X (Version None)
Quarter: 2010Q2

REPORT INFORMATION
  Report Type: 
  Country: None (occurrence: None)
  Receive Date: 20100504
  Receipt Date: 20100427
  Transmission Date: 20101027
  Serious: Yes (Hospitalization)
  Sender: FDA-Public Use
  Company Number: PHHO2010SE06628

PATIENT
  Sex: Male
  Weight: 78 kg

DRUGS (4)
  1. TASIGNA [Suspect]
     Indication: GASTROINTESTINAL STROMAL TUMOUR
     Dosage: 400 MG, BID
     Route: 048
     Dates: start: 20091222, end: 20100401
  2. OMEPRAZOLE [Concomitant]
     Indication: GASTRIC ULCER
  3. DUROFERON [Concomitant]
     Indication: ANAEMIA
  4. B-KOMBIN FORTE [Concomitant]
     Indication: VITAMIN B COMPLEX DEFICIENCY

REACTIONS (1)
  - ASCITES [None]
